FAERS Safety Report 11078539 (Version 1)
Quarter: 2015Q2

REPORT INFORMATION
  Report Type: Spontaneous
  Country: US (occurrence: None)
  Receive Date: 20150429
  Receipt Date: 20150429
  Transmission Date: 20150821
  Serious: No
  Sender: FDA-Public Use
  Company Number: None

PATIENT
  Age: 18 Year
  Sex: Male
  Weight: 141 kg

DRUGS (22)
  1. CYCLOPHOSPHAMIDE. [Suspect]
     Active Substance: CYCLOPHOSPHAMIDE
     Dates: end: 20150112
  2. METHOTREXATE [Suspect]
     Active Substance: METHOTREXATE
     Dates: end: 20141223
  3. HYDROXINE [Concomitant]
  4. GLUTAMINE [Concomitant]
     Active Substance: GLUTAMINE
  5. SCOPOLAMINE [Concomitant]
     Active Substance: SCOPOLAMINE
  6. TYLENOL [Concomitant]
     Active Substance: ACETAMINOPHEN
  7. ZOFRAN-ODT [Concomitant]
  8. CYTARABINE. [Suspect]
     Active Substance: CYTARABINE
     Dates: end: 20150122
  9. MIRALAX [Concomitant]
     Active Substance: POLYETHYLENE GLYCOL 3350
  10. OMEPRAZOLE. [Concomitant]
     Active Substance: OMEPRAZOLE
  11. PYRIDOXINE [Concomitant]
     Active Substance: PYRIDOXINE
  12. MERCAPTOPURINE. [Suspect]
     Active Substance: MERCAPTOPURINE
     Dates: end: 20141214
  13. ONCASPAR [Suspect]
     Active Substance: PEGASPARGASE
     Dates: end: 20150126
  14. VINCRISTINE SULFATE. [Suspect]
     Active Substance: VINCRISTINE SULFATE
     Dates: end: 20150202
  15. CALCIUM CARBONATE. [Concomitant]
     Active Substance: CALCIUM CARBONATE
  16. ZANTAC [Concomitant]
     Active Substance: RANITIDINE HYDROCHLORIDE
  17. FLUCONAZOLE. [Concomitant]
     Active Substance: FLUCONAZOLE
  18. LIDOCIANE-PRILOCAINE CREAM [Concomitant]
  19. LORAZEPAM. [Concomitant]
     Active Substance: LORAZEPAM
  20. SENOKOT [Concomitant]
     Active Substance: SENNOSIDES
  21. VITAMIN D3 [Concomitant]
     Active Substance: CHOLECALCIFEROL
  22. BACTRIM [Concomitant]
     Active Substance: SULFAMETHOXAZOLE\TRIMETHOPRIM

REACTIONS (2)
  - Neutropenia [None]
  - Thrombocytopenia [None]

NARRATIVE: CASE EVENT DATE: 20150202
